FAERS Safety Report 8720493 (Version 2)
Quarter: 2013Q4

REPORT INFORMATION
  Report Type: Spontaneous
  Country: US (occurrence: US)
  Receive Date: 20120813
  Receipt Date: 20131031
  Transmission Date: 20140711
  Serious: No
  Sender: FDA-Public Use
  Company Number: US-009507513-2012SP032889

PATIENT
  Age: 80 Year
  Sex: Female
  Weight: 93.88 kg

DRUGS (1)
  1. DR. SCHOLL^S FREEZE AWAY COMMON + PLANTAR WART REMOVER [Suspect]
     Indication: SKIN PAPILLOMA
     Dosage: 3 DF, UNK
     Route: 061
     Dates: start: 201205

REACTIONS (1)
  - No therapeutic response [Unknown]
